FAERS Safety Report 19092709 (Version 1)
Quarter: 2021Q2

REPORT INFORMATION
  Report Type: Spontaneous
  Country: US (occurrence: US)
  Receive Date: 20210405
  Receipt Date: 20210405
  Transmission Date: 20210717
  Serious: Yes (Hospitalization)
  Sender: FDA-Public Use
  Company Number: None

PATIENT
  Age: 91 Year
  Sex: Female

DRUGS (4)
  1. ROSUVASTATIN. [Concomitant]
     Active Substance: ROSUVASTATIN
  2. AMBRISENTAN TAB 5MG [Suspect]
     Active Substance: AMBRISENTAN
     Route: 048
     Dates: start: 20191111
  3. ASPIRIN. [Concomitant]
     Active Substance: ASPIRIN
  4. NIFEDIPINE XL [Concomitant]
     Active Substance: NIFEDIPINE

REACTIONS (1)
  - Rectal haemorrhage [None]

NARRATIVE: CASE EVENT DATE: 20210404
